FAERS Safety Report 20137019 (Version 1)
Quarter: 2021Q4

REPORT INFORMATION
  Report Type: Report from Study
  Country: PK (occurrence: PK)
  Receive Date: 20211201
  Receipt Date: 20211201
  Transmission Date: 20220303
  Serious: Yes (Death, Other)
  Sender: FDA-Public Use
  Company Number: PK-NOVARTISPH-NVSC2021PK273626

PATIENT
  Age: 56 Year
  Sex: Male
  Weight: 80 kg

DRUGS (1)
  1. AFINITOR [Suspect]
     Active Substance: EVEROLIMUS
     Indication: Renal cell carcinoma
     Dosage: 10 MG, QD
     Route: 048
     Dates: start: 20210617

REACTIONS (3)
  - Myocardial infarction [Fatal]
  - Loss of consciousness [Fatal]
  - Chest pain [Fatal]

NARRATIVE: CASE EVENT DATE: 20210814
